FAERS Safety Report 19193020 (Version 1)
Quarter: 2021Q2

REPORT INFORMATION
  Report Type: Spontaneous
  Country: CN (occurrence: CN)
  Receive Date: 20210429
  Receipt Date: 20210429
  Transmission Date: 20210717
  Serious: Yes (Other)
  Sender: FDA-Public Use
  Company Number: CN-009507513-2104CHN008153

PATIENT
  Age: 61 Year
  Sex: Male
  Weight: 49 kg

DRUGS (9)
  1. NEDAPLATIN [Suspect]
     Active Substance: NEDAPLATIN
     Indication: NASOPHARYNGEAL CANCER RECURRENT
     Dosage: 90 MG, 1 TIME 1 DAY, ALSO REPORTED AS QD
     Route: 041
     Dates: start: 20210401, end: 20210401
  2. SODIUM CHLORIDE. [Concomitant]
     Active Substance: SODIUM CHLORIDE
     Dosage: 500 ML, 1 TIME 1 DAY
     Route: 041
     Dates: start: 20210401, end: 20210401
  3. GEMCITABINE HYDROCHLORIDE. [Suspect]
     Active Substance: GEMCITABINE HYDROCHLORIDE
     Indication: NASOPHARYNGEAL CANCER METASTATIC
  4. SODIUM CHLORIDE. [Concomitant]
     Active Substance: SODIUM CHLORIDE
     Dosage: 100 ML, 1 TIME 1 DAY
     Route: 041
     Dates: start: 20210401, end: 20210401
  5. KEYTRUDA [Suspect]
     Active Substance: PEMBROLIZUMAB
     Indication: NASOPHARYNGEAL CANCER METASTATIC
  6. NEDAPLATIN [Suspect]
     Active Substance: NEDAPLATIN
     Indication: NASOPHARYNGEAL CANCER METASTATIC
  7. GEMCITABINE HYDROCHLORIDE. [Suspect]
     Active Substance: GEMCITABINE HYDROCHLORIDE
     Indication: NASOPHARYNGEAL CANCER RECURRENT
     Dosage: 1.4 G, 1 TIME 1 DAY, ALSO REPORTED AS QD
     Route: 041
     Dates: start: 20210401, end: 20210401
  8. KEYTRUDA [Suspect]
     Active Substance: PEMBROLIZUMAB
     Indication: NASOPHARYNGEAL CANCER RECURRENT
     Dosage: 200 MG, 1 TIME 1 DAY, ALSO REPORTED AS QD
     Route: 041
     Dates: start: 20210401, end: 20210401
  9. SODIUM CHLORIDE. [Concomitant]
     Active Substance: SODIUM CHLORIDE
     Dosage: 250 ML, 1 TIME 1 DAY
     Route: 041
     Dates: start: 20210401, end: 20210401

REACTIONS (1)
  - Myelosuppression [Recovering/Resolving]

NARRATIVE: CASE EVENT DATE: 20210405
